FAERS Safety Report 5846745-8 (Version None)
Quarter: 2008Q3

REPORT INFORMATION
  Report Type: 
  Country: None (occurrence: None)
  Receive Date: 20080815
  Receipt Date: 20080807
  Transmission Date: 20090109
  Serious: Yes (Hospitalization)
  Sender: FDA-Public Use
  Company Number: BE-BRISTOL-MYERS SQUIBB COMPANY-14286835

PATIENT
  Age: 76 Year
  Sex: Male
  Weight: 77 kg

DRUGS (4)
  1. CETUXIMAB [Suspect]
     Indication: COLORECTAL CANCER METASTATIC
     Dosage: MOST RECENT INFUSION ON 23JUL08
     Route: 042
     Dates: start: 20080110
  2. UFT [Suspect]
     Indication: COLORECTAL CANCER METASTATIC
     Dosage: 3 DOSAGEFORM = 3 CAPS.  MOST RECENT INFUSION ON 17JUL08 10-JAN-2008 TO UNK 30-JUL-2008 TO ONG
     Route: 048
     Dates: start: 20080110
  3. OXALIPLATIN [Suspect]
     Indication: COLORECTAL CANCER METASTATIC
     Dosage: DISCONTINUED ON 16JUL08 DUE RO POLYNEUROPATHY
     Route: 042
     Dates: start: 20080110, end: 20080702
  4. FOLINIC ACID [Concomitant]
     Indication: COLORECTAL CANCER METASTATIC
     Dosage: FORM = TABS. MOST RECENT INFUSION ON 17JUL08
     Route: 048
     Dates: start: 20080110

REACTIONS (1)
  - DIARRHOEA [None]
